FAERS Safety Report 10071212 (Version 1)
Quarter: 2014Q2

REPORT INFORMATION
  Report Type: Spontaneous
  Country: ES (occurrence: ES)
  Receive Date: 20140410
  Receipt Date: 20140410
  Transmission Date: 20141212
  Serious: Yes (Other)
  Sender: FDA-Public Use
  Company Number: ES-CELGENEUS-144-21880-14035184

PATIENT
  Age: 56 Year
  Sex: Female

DRUGS (4)
  1. REVLIMID [Suspect]
     Indication: PLASMA CELL MYELOMA RECURRENT
     Route: 048
  2. REVLIMID [Suspect]
     Route: 048
  3. FORTECORTIN [Concomitant]
     Indication: PLASMA CELL MYELOMA
     Route: 065
  4. LMWH [Concomitant]
     Indication: PRODUCT USED FOR UNKNOWN INDICATION
     Dosage: STANDARD DOSE
     Route: 065

REACTIONS (7)
  - Arterial disorder [Unknown]
  - Anal sphincter atony [Unknown]
  - Loss of consciousness [Recovered/Resolved]
  - Loss of consciousness [None]
  - Malaise [Unknown]
  - Fall [Unknown]
  - Fall [Unknown]
